FAERS Safety Report 4687183-3 (Version None)
Quarter: 2005Q2

REPORT INFORMATION
  Report Type: 
  Country: None (occurrence: None)
  Receive Date: 20050606
  Receipt Date: 20050526
  Transmission Date: 20051028
  Serious: Yes (Hospitalization, Other)
  Sender: FDA-Public Use
  Company Number: 2005016042

PATIENT
  Sex: Male

DRUGS (1)
  1. NEURONTIN [Suspect]
     Indication: RESTLESS LEGS SYNDROME
     Dates: start: 19990907

REACTIONS (11)
  - AGGRESSION [None]
  - CONVULSION [None]
  - DEPRESSION [None]
  - DRUG INEFFECTIVE [None]
  - GUN SHOT WOUND [None]
  - HEADACHE [None]
  - HEMIPARESIS [None]
  - PARAPARESIS [None]
  - SIMPLE PARTIAL SEIZURES [None]
  - SUBDURAL HAEMATOMA [None]
  - SUICIDE ATTEMPT [None]
